FAERS Safety Report 5642780-3 (Version None)
Quarter: 2008Q1

REPORT INFORMATION
  Report Type: 
  Country: None (occurrence: None)
  Receive Date: 20080131
  Receipt Date: 20071002
  Transmission Date: 20080703
  Serious: Yes (Other)
  Sender: FDA-Public Use
  Company Number: PHEH2007US13117

PATIENT
  Age: 75 Year
  Sex: Female

DRUGS (5)
  1. TEKTURNA [Suspect]
     Indication: HYPERTENSION
     Dosage: 150 MG, QD, ORAL, 2300 MG,QD,ORAL
     Route: 048
     Dates: start: 20070821, end: 20070919
  2. TEKTURNA [Suspect]
     Indication: HYPERTENSION
     Dosage: 150 MG, QD, ORAL, 2300 MG,QD,ORAL
     Route: 048
     Dates: start: 20070920
  3. COREG [Concomitant]
  4. BENICAR [Concomitant]
  5. GLUCOPHAGE [Concomitant]

REACTIONS (6)
  - BLOOD GLUCOSE INCREASED [None]
  - BLOOD PRESSURE FLUCTUATION [None]
  - BLOOD PRESSURE INCREASED [None]
  - BRONCHITIS [None]
  - COUGH [None]
  - NASOPHARYNGITIS [None]
